FAERS Safety Report 9308849 (Version 1)
Quarter: 2013Q2

REPORT INFORMATION
  Report Type: Report from Study
  Country: US (occurrence: US)
  Receive Date: 20130524
  Receipt Date: 20130524
  Transmission Date: 20140414
  Serious: Yes (Hospitalization)
  Sender: FDA-Public Use
  Company Number: US-TEVA-404056USA

PATIENT
  Age: 67 Year
  Sex: Female
  Weight: 42.9 kg

DRUGS (6)
  1. TREANDA [Suspect]
     Indication: DIFFUSE LARGE B-CELL LYMPHOMA
     Dosage: 2X PER CYCLE
     Route: 042
     Dates: start: 20130420
  2. ETOPOSIDE [Suspect]
     Indication: DIFFUSE LARGE B-CELL LYMPHOMA
     Dosage: 3X PER CYCLE
     Route: 042
     Dates: start: 20130420
  3. CARBOPLATIN [Suspect]
     Indication: DIFFUSE LARGE B-CELL LYMPHOMA
     Route: 042
     Dates: start: 20130420
  4. RITUXIMAB [Suspect]
     Indication: DIFFUSE LARGE B-CELL LYMPHOMA
     Route: 042
     Dates: start: 20130421
  5. ALLOPURINOL [Concomitant]
     Indication: PROPHYLAXIS
     Route: 048
     Dates: start: 20130421
  6. ONDANSETRON [Concomitant]
     Indication: NAUSEA
     Dosage: 4-8MG
     Route: 042
     Dates: start: 20130429

REACTIONS (2)
  - Febrile neutropenia [Not Recovered/Not Resolved]
  - Periorbital cellulitis [Not Recovered/Not Resolved]
